FAERS Safety Report 9262676 (Version 2)
Quarter: 2013Q2

REPORT INFORMATION
  Report Type: Spontaneous
  Country: US (occurrence: None)
  Receive Date: 20130426
  Receipt Date: 20130612
  Transmission Date: 20140414
  Serious: Yes (Disabling)
  Sender: FDA-Public Use
  Company Number: ACO_35603_2013

PATIENT
  Age: 71 Year
  Sex: Female

DRUGS (8)
  1. AMPYRA [Suspect]
     Indication: GAIT DISTURBANCE
     Dates: start: 20130318, end: 20130413
  2. AMPYRA [Suspect]
     Indication: MULTIPLE SCLEROSIS
     Dates: start: 20130318, end: 20130413
  3. NEURONTIN [Concomitant]
  4. AVONEX [Concomitant]
  5. METHOTREXATE IPF [Concomitant]
  6. FOLIC ACID [Concomitant]
  7. VITAMIN D [Concomitant]
  8. SIMVASTATIN [Concomitant]

REACTIONS (7)
  - Dysstasia [None]
  - Muscular weakness [None]
  - Fall [None]
  - Confusional arousal [None]
  - Disorientation [None]
  - Headache [None]
  - Back pain [None]
